FAERS Safety Report 12451208 (Version 1)
Quarter: 2016Q2

REPORT INFORMATION
  Report Type: Spontaneous
  Country: US (occurrence: US)
  Receive Date: 20160609
  Receipt Date: 20160609
  Transmission Date: 20160815
  Serious: Yes (Hospitalization)
  Sender: FDA-Public Use
  Company Number: US-ASTRAZENECA-2016SE59771

PATIENT
  Age: 53 Year
  Sex: Male
  Weight: 93 kg

DRUGS (8)
  1. NINE OTHER PARKINSON PILLS [Concomitant]
     Dosage: DAILY
  2. ORENCIA [Concomitant]
     Active Substance: ABATACEPT
     Indication: ARTHRITIS
     Dosage: ONCE A WEEK
     Route: 058
     Dates: start: 2012
  3. VALIUM [Concomitant]
     Active Substance: DIAZEPAM
     Indication: NERVOUS SYSTEM DISORDER
     Route: 048
     Dates: start: 2015
  4. SYMBICORT [Suspect]
     Active Substance: BUDESONIDE\FORMOTEROL FUMARATE DIHYDRATE
     Indication: ASTHMA
     Dosage: 160/4.5MCG , TWO PUFFS A DAY
     Route: 055
     Dates: start: 2011
  5. SYMBICORT [Suspect]
     Active Substance: BUDESONIDE\FORMOTEROL FUMARATE DIHYDRATE
     Indication: EMPHYSEMA
     Dosage: 160/4.5MCG , TWO PUFFS A DAY
     Route: 055
     Dates: start: 2011
  6. PERCOCET [Concomitant]
     Active Substance: ACETAMINOPHEN\OXYCODONE HYDROCHLORIDE
     Indication: PAIN
     Dosage: 5/352MG,  EVERY 4 - 6 HOURS
     Route: 048
     Dates: start: 201603
  7. SYMBICORT [Suspect]
     Active Substance: BUDESONIDE\FORMOTEROL FUMARATE DIHYDRATE
     Indication: EMPHYSEMA
     Dosage: 160/4.5MCG , TWO PUFFS TWICE DAILY
     Route: 055
     Dates: start: 2011
  8. SYMBICORT [Suspect]
     Active Substance: BUDESONIDE\FORMOTEROL FUMARATE DIHYDRATE
     Indication: ASTHMA
     Dosage: 160/4.5MCG , TWO PUFFS TWICE DAILY
     Route: 055
     Dates: start: 2011

REACTIONS (13)
  - Arthritis [Not Recovered/Not Resolved]
  - Peroneal nerve palsy [Not Recovered/Not Resolved]
  - Wheezing [Recovered/Resolved]
  - Paranoia [Recovered/Resolved]
  - Limb injury [Recovered/Resolved]
  - Body height decreased [Unknown]
  - Gait disturbance [Recovered/Resolved]
  - Dysphonia [Recovered/Resolved]
  - Intentional product misuse [Unknown]
  - Arthropathy [Not Recovered/Not Resolved]
  - Feeling hot [Unknown]
  - Rheumatoid arthritis [Unknown]
  - Pericardial effusion [Unknown]

NARRATIVE: CASE EVENT DATE: 2011
